FAERS Safety Report 8611510-5 (Version None)
Quarter: 2012Q3

REPORT INFORMATION
  Report Type: 
  Country: None (occurrence: None)
  Receive Date: 20120809
  Receipt Date: 20120725
  Transmission Date: 20120928
  Serious: Yes (Hospitalization)
  Sender: FDA-Public Use
  Company Number: TPA2012A04611

PATIENT
  Age: 81 Year
  Sex: Male

DRUGS (4)
  1. PRAVASTATIN [Concomitant]
  2. TENORMIN [Concomitant]
  3. FEBURIC (FEBUXOSTAT) [Suspect]
     Indication: HYPERURICAEMIA
     Dosage: 20 MG (20 MG, 3 IN 1 D), PER ORAL
     Route: 048
     Dates: start: 20120612, end: 20120622
  4. AMLODIPINE BESYLATE [Concomitant]

REACTIONS (1)
  - GASTRIC ULCER HAEMORRHAGE [None]
